FAERS Safety Report 4589401-9 (Version None)
Quarter: 2005Q1

REPORT INFORMATION
  Report Type: 
  Country: None (occurrence: None)
  Receive Date: 20050223
  Receipt Date: 20050210
  Transmission Date: 20050727
  Serious: Yes (Other)
  Sender: FDA-Public Use
  Company Number: PHNU2005DE01035

PATIENT
  Sex: Male

DRUGS (1)
  1. ELIDEL [Suspect]
     Indication: NEURODERMATITIS
     Route: 061
     Dates: start: 20050206, end: 20050207

REACTIONS (3)
  - NEURODERMATITIS [None]
  - OEDEMA [None]
  - VASCULITIS [None]
